FAERS Safety Report 14783517 (Version 2)
Quarter: 2018Q4

REPORT INFORMATION
  Report Type: Spontaneous
  Country: FR (occurrence: FR)
  Receive Date: 20180420
  Receipt Date: 20181130
  Transmission Date: 20190204
  Serious: Yes (Death, Hospitalization, Other)
  Sender: FDA-Public Use
  Company Number: FR-PFIZER INC-2018160643

PATIENT
  Age: 42 Year
  Sex: Female

DRUGS (4)
  1. PROCARBAZINE [Suspect]
     Active Substance: PROCARBAZINE
     Indication: BRAIN NEOPLASM
     Dosage: UNK
  2. LOMUSTINE. [Suspect]
     Active Substance: LOMUSTINE
     Indication: BRAIN NEOPLASM
     Dosage: 60 MG/M2, ON DAYS 3 AND 4
     Dates: start: 197603
  3. DOXORUBICIN HCL [Suspect]
     Active Substance: DOXORUBICIN HYDROCHLORIDE
     Indication: BRAIN NEOPLASM
     Dosage: UNK
  4. TENIPOSIDE. [Suspect]
     Active Substance: TENIPOSIDE
     Indication: BRAIN NEOPLASM
     Dosage: 60 MG/M2, UNK (ON DAYS I AND 2)
     Dates: start: 197603

REACTIONS (2)
  - Acute myeloid leukaemia [Fatal]
  - Second primary malignancy [Fatal]
